FAERS Safety Report 19314781 (Version 2)
Quarter: 2021Q2

REPORT INFORMATION
  Report Type: Spontaneous
  Country: JP (occurrence: JP)
  Receive Date: 20210527
  Receipt Date: 20210603
  Transmission Date: 20210717
  Serious: Yes (Other)
  Sender: FDA-Public Use
  Company Number: JP-TAKEDA-2021TUS033657

PATIENT
  Age: 9 Decade
  Sex: Female

DRUGS (4)
  1. LIXIANA [Concomitant]
     Active Substance: EDOXABAN TOSYLATE
     Dosage: UNK
     Route: 065
  2. KREMEZIN [Concomitant]
     Active Substance: ACTIVATED CHARCOAL
     Dosage: UNK
     Route: 065
  3. FEBURIC [Suspect]
     Active Substance: FEBUXOSTAT
     Indication: PRODUCT USED FOR UNKNOWN INDICATION
     Dosage: 10 MILLIGRAM, QD
     Route: 048
  4. ILUAMIX [Concomitant]
     Dosage: UNK
     Route: 065

REACTIONS (1)
  - Renal impairment [Unknown]
